FAERS Safety Report 26192151 (Version 1)
Quarter: 2025Q4

REPORT INFORMATION
  Report Type: Report from Study
  Country: CA (occurrence: CA)
  Receive Date: 20251223
  Receipt Date: 20251223
  Transmission Date: 20260117
  Serious: Yes (Hospitalization)
  Sender: ALEXION PHARMACEUTICALS
  Company Number: CA-AstraZeneca-CH-01017360A

PATIENT
  Sex: Male

DRUGS (4)
  1. RAVULIZUMAB [Suspect]
     Active Substance: RAVULIZUMAB
     Indication: Paroxysmal nocturnal haemoglobinuria
     Dosage: 2700 MILLIGRAM, SINGLE
  2. RAVULIZUMAB [Suspect]
     Active Substance: RAVULIZUMAB
     Dosage: 3000 MILLIGRAM
  3. RAVULIZUMAB [Suspect]
     Active Substance: RAVULIZUMAB
     Dosage: 3000 MILLIGRAM, Q8W
     Dates: start: 20250703
  4. RAVULIZUMAB [Suspect]
     Active Substance: RAVULIZUMAB
     Dosage: UNK

REACTIONS (1)
  - Bacterial infection [Recovering/Resolving]
